FAERS Safety Report 8340192-5 (Version None)
Quarter: 2012Q2

REPORT INFORMATION
  Report Type: 
  Country: None (occurrence: None)
  Receive Date: 20120507
  Receipt Date: 20120426
  Transmission Date: 20120825
  Serious: Yes (Other)
  Sender: FDA-Public Use
  Company Number: US-BRISTOL-MYERS SQUIBB COMPANY-16550790

PATIENT
  Age: 55 Year
  Sex: Male

DRUGS (1)
  1. ERBITUX [Suspect]
     Indication: COLON CANCER METASTATIC
     Dosage: PATIENT HAS RECEIVED AT LEAST A LOADING DOSE AND ONE WEEKLY MAINTENANCE DOSE OF ERBITUX.

REACTIONS (1)
  - HYPERBILIRUBINAEMIA [None]
